FAERS Safety Report 20382128 (Version 1)
Quarter: 2022Q1

REPORT INFORMATION
  Report Type: Spontaneous
  Country: FR (occurrence: FR)
  Receive Date: 20220127
  Receipt Date: 20220127
  Transmission Date: 20220423
  Serious: Yes (Hospitalization)
  Sender: FDA-Public Use
  Company Number: None

PATIENT
  Age: 71 Year
  Sex: Female

DRUGS (3)
  1. ALPRAZOLAM [Suspect]
     Active Substance: ALPRAZOLAM
     Dosage: NR
     Route: 048
  2. TOBACCO LEAF [Suspect]
     Active Substance: TOBACCO LEAF
     Dosage: NR
     Route: 055
     Dates: start: 1963, end: 1981
  3. ALCOHOL [Suspect]
     Active Substance: ALCOHOL
     Dosage: NR
     Route: 048
     Dates: start: 1967

REACTIONS (2)
  - Affect lability [Recovering/Resolving]
  - Drug abuse [Recovering/Resolving]
